FAERS Safety Report 15009433 (Version 2)
Quarter: 2018Q2

REPORT INFORMATION
  Report Type: Spontaneous
  Country: KR (occurrence: KR)
  Receive Date: 20180614
  Receipt Date: 20180622
  Transmission Date: 20180711
  Serious: Yes (Other)
  Sender: FDA-Public Use
  Company Number: KR-CONCORDIA PHARMACEUTICALS INC.-GSH201806-001978

PATIENT
  Age: 40 Year
  Sex: Female

DRUGS (1)
  1. HYDROXYCHLOROQUINE [Suspect]
     Active Substance: HYDROXYCHLOROQUINE
     Indication: SYSTEMIC LUPUS ERYTHEMATOSUS
     Dosage: 8.5 MG/KG ACTUAL BODY WEIGHT

REACTIONS (4)
  - Macular pigmentation [Unknown]
  - Cystoid macular oedema [Recovered/Resolved]
  - Retinopathy [Recovered/Resolved]
  - Visual impairment [Recovered/Resolved]
